FAERS Safety Report 20517321 (Version 1)
Quarter: 2022Q1

REPORT INFORMATION
  Report Type: Spontaneous
  Country: HU (occurrence: HU)
  Receive Date: 20220225
  Receipt Date: 20220225
  Transmission Date: 20220423
  Serious: Yes (Other)
  Sender: FDA-Public Use
  Company Number: HU-NOVARTISPH-NVSC2022HU042996

PATIENT
  Age: 55 Year
  Sex: Male

DRUGS (1)
  1. PANTOPRAZOLE SODIUM [Suspect]
     Active Substance: PANTOPRAZOLE SODIUM
     Indication: Hyperchlorhydria
     Dosage: 20 MG
     Route: 065

REACTIONS (2)
  - Blindness [Not Recovered/Not Resolved]
  - Vision blurred [Not Recovered/Not Resolved]
